FAERS Safety Report 25263294 (Version 1)
Quarter: 2025Q2

REPORT INFORMATION
  Report Type: Spontaneous
  Country: US (occurrence: None)
  Receive Date: 20250501
  Receipt Date: 20250501
  Transmission Date: 20250717
  Serious: Yes (Life-Threatening, Hospitalization, Disabling, Other)
  Sender: FDA-CTU
  Company Number: None

PATIENT
  Age: 89 Year
  Sex: Female
  Weight: 52.2 kg

DRUGS (10)
  1. CIPROFLOXACIN [Suspect]
     Active Substance: CIPROFLOXACIN
     Indication: Urinary tract infection
     Dates: start: 20250424, end: 20250424
  2. TYLENOL [Concomitant]
     Active Substance: ACETAMINOPHEN
  3. AMLODIPINE [Concomitant]
     Active Substance: AMLODIPINE BESYLATE
  4. ATORVASTATIN [Concomitant]
     Active Substance: ATORVASTATIN
  5. CARVEDILOL [Concomitant]
     Active Substance: CARVEDILOL
  6. CLOPIDOGREL [Concomitant]
     Active Substance: CLOPIDOGREL BISULFATE
  7. LOSARTAN [Concomitant]
     Active Substance: LOSARTAN
  8. AZO [Concomitant]
     Active Substance: PHENAZOPYRIDINE HYDROCHLORIDE
  9. DEMANNOSE [Concomitant]
     Active Substance: DEMANNOSE
  10. VITAMINS [Concomitant]
     Active Substance: VITAMINS

REACTIONS (4)
  - Transient ischaemic attack [None]
  - Cerebrovascular accident [None]
  - Acute myocardial infarction [None]
  - Physical deconditioning [None]

NARRATIVE: CASE EVENT DATE: 20250424
